FAERS Safety Report 5066612-X (Version None)
Quarter: 2006Q3

REPORT INFORMATION
  Report Type: 
  Country: None (occurrence: None)
  Receive Date: 20060726
  Receipt Date: 20060713
  Transmission Date: 20061208
  Serious: Yes (Other)
  Sender: FDA-Public Use
  Company Number: 2005144830

PATIENT
  Sex: Male

DRUGS (2)
  1. CELEBREX [Suspect]
     Indication: ARTHRALGIA
     Dosage: (200 MG, UNKNOWN)
     Dates: start: 20050924
  2. CELEBREX [Suspect]
     Indication: OSTEOARTHRITIS
     Dosage: (200 MG, UNKNOWN)
     Dates: start: 20050924

REACTIONS (2)
  - ARTERIAL GRAFT [None]
  - SURGERY [None]
